FAERS Safety Report 6687774-4 (Version None)
Quarter: 2010Q2

REPORT INFORMATION
  Report Type: 
  Country: None (occurrence: None)
  Receive Date: 20100420
  Receipt Date: 20100412
  Transmission Date: 20101027
  Serious: No
  Sender: FDA-Public Use
  Company Number: US-BIOGENIDEC-2010BI012406

PATIENT
  Age: 62 Year
  Sex: Female

DRUGS (3)
  1. AVONEX [Suspect]
     Indication: MULTIPLE SCLEROSIS
     Route: 030
     Dates: start: 20000204, end: 20040924
  2. AVONEX [Suspect]
     Route: 030
     Dates: start: 20060102, end: 20060828
  3. AVONEX [Suspect]
     Route: 030
     Dates: start: 20081222

REACTIONS (1)
  - GAIT DISTURBANCE [None]
